FAERS Safety Report 11996432 (Version 1)
Quarter: 2016Q1

REPORT INFORMATION
  Report Type: Spontaneous
  Country: US (occurrence: US)
  Receive Date: 20160203
  Receipt Date: 20160203
  Transmission Date: 20160526
  Serious: No
  Sender: FDA-Public Use
  Company Number: US-GLAXOSMITHKLINE-US2016009904

PATIENT
  Age: 67 Year
  Sex: Female

DRUGS (2)
  1. COREG [Suspect]
     Active Substance: CARVEDILOL
     Indication: HYPERTENSION
     Dosage: 12.5 MG, 1D
     Route: 048
     Dates: start: 20151016, end: 20151101
  2. VASOTEC [Suspect]
     Active Substance: ENALAPRIL MALEATE
     Indication: PRODUCT USED FOR UNKNOWN INDICATION
     Dosage: UNK
     Dates: end: 2015

REACTIONS (8)
  - Paraesthesia [Not Recovered/Not Resolved]
  - Peripheral swelling [Not Recovered/Not Resolved]
  - Eyelid ptosis [Unknown]
  - Throat tightness [Unknown]
  - Condition aggravated [Not Recovered/Not Resolved]
  - Muscle tightness [Not Recovered/Not Resolved]
  - Vascular pain [Unknown]
  - Lip swelling [Unknown]

NARRATIVE: CASE EVENT DATE: 20151025
